FAERS Safety Report 5795441-4 (Version None)
Quarter: 2008Q2

REPORT INFORMATION
  Report Type: 
  Country: None (occurrence: None)
  Receive Date: 20080601
  Receipt Date: 20080201
  Transmission Date: 20081010
  Serious: No
  Sender: FDA-Public Use
  Company Number: US200802000488

PATIENT
  Age: 66 Year
  Sex: Female

DRUGS (9)
  1. BYETTA [Suspect]
     Indication: TYPE 2 DIABETES MELLITUS
     Dosage: 5 UG, DAILY (1/D), SUBCUTANEOUS ; 5 UG, 2/D, SUBCUTANEOUS
     Route: 058
     Dates: start: 20071101, end: 20071201
  2. BYETTA [Suspect]
     Indication: TYPE 2 DIABETES MELLITUS
     Dosage: 5 UG, DAILY (1/D), SUBCUTANEOUS ; 5 UG, 2/D, SUBCUTANEOUS
     Route: 058
     Dates: start: 20071201
  3. LOTRISONE [Concomitant]
  4. METFORMIN HCL [Concomitant]
  5. CLARITIN [Concomitant]
  6. FISH OIL (FISH OIL) [Concomitant]
  7. HYZAAR [Concomitant]
  8. NORVASC [Concomitant]
  9. TUSSIONEX [Concomitant]

REACTIONS (7)
  - BLOOD GLUCOSE INCREASED [None]
  - BLOOD PRESSURE INCREASED [None]
  - COUGH [None]
  - HAEMOPTYSIS [None]
  - NASOPHARYNGITIS [None]
  - RASH [None]
  - RASH PRURITIC [None]
